FAERS Safety Report 8135071-2 (Version None)
Quarter: 2012Q1

REPORT INFORMATION
  Report Type: 
  Country: None (occurrence: None)
  Receive Date: 20120214
  Receipt Date: 20120210
  Transmission Date: 20120608
  Serious: No
  Sender: FDA-Public Use
  Company Number: US-PFIZER INC-2012037255

PATIENT
  Sex: Female

DRUGS (1)
  1. FLECTOR [Suspect]
     Dosage: UNK
     Route: 062
     Dates: start: 20120201, end: 20120209

REACTIONS (4)
  - FACIAL PAIN [None]
  - NECK PAIN [None]
  - SWELLING FACE [None]
  - HYPOAESTHESIA [None]
